FAERS Safety Report 4749666-7 (Version None)
Quarter: 2005Q3

REPORT INFORMATION
  Report Type: 
  Country: None (occurrence: None)
  Receive Date: 20050822
  Receipt Date: 20050308
  Transmission Date: 20060218
  Serious: Yes (Hospitalization)
  Sender: FDA-Public Use
  Company Number: US-MERCK-0503USA01370

PATIENT
  Age: 68 Year
  Sex: Male
  Weight: 82 kg

DRUGS (1)
  1. VIOXX [Suspect]
     Indication: ARTHRALGIA
     Route: 048
     Dates: start: 20000615, end: 20040623

REACTIONS (8)
  - ACUTE RESPIRATORY FAILURE [None]
  - BENIGN PROSTATIC HYPERPLASIA [None]
  - BUNDLE BRANCH BLOCK LEFT [None]
  - CARDIAC FAILURE CONGESTIVE [None]
  - CEREBROVASCULAR ACCIDENT [None]
  - EMPHYSEMA [None]
  - ISCHAEMIC CARDIOMYOPATHY [None]
  - PANCREATITIS [None]
